FAERS Safety Report 14883131 (Version 2)
Quarter: 2018Q3

REPORT INFORMATION
  Report Type: Spontaneous
  Country: US (occurrence: US)
  Receive Date: 20180511
  Receipt Date: 20180803
  Transmission Date: 20181010
  Serious: No
  Sender: FDA-Public Use
  Company Number: US-PFIZER INC-2018091333

PATIENT
  Age: 71 Year
  Sex: Female

DRUGS (9)
  1. ADRIAMYCIN [Concomitant]
     Active Substance: DOXORUBICIN HYDROCHLORIDE
     Indication: CHEMOTHERAPY
     Dosage: UNK
  2. CYTOXAN [Concomitant]
     Active Substance: CYCLOPHOSPHAMIDE
     Indication: CHEMOTHERAPY
     Dosage: UNK
  3. DACARBAZINE. [Concomitant]
     Active Substance: DACARBAZINE
     Indication: CHEMOTHERAPY
     Dosage: UNK
  4. VINBLASTINE [Concomitant]
     Active Substance: VINBLASTINE
     Indication: CHEMOTHERAPY
     Dosage: UNK
  5. BLEOMYCIN [Concomitant]
     Active Substance: BLEOMYCIN SULFATE
     Indication: CHEMOTHERAPY
     Dosage: UNK
  6. DOXIL [Concomitant]
     Active Substance: DOXORUBICIN HYDROCHLORIDE
     Indication: CHEMOTHERAPY
     Dosage: UNK
  7. TAXOTERE [Concomitant]
     Active Substance: DOCETAXEL
     Indication: CHEMOTHERAPY
     Dosage: UNK
  8. DOCETAXEL. [Suspect]
     Active Substance: DOCETAXEL
     Indication: BREAST CANCER FEMALE
     Dosage: UNK, CYCLIC EVERY WEEK (6 CYCLES)
     Dates: start: 20140522, end: 20140916
  9. NEOSAR [Concomitant]
     Active Substance: CYCLOPHOSPHAMIDE
     Indication: CHEMOTHERAPY
     Dosage: UNK

REACTIONS (5)
  - Alopecia [Not Recovered/Not Resolved]
  - Hair disorder [Unknown]
  - Hair colour changes [Unknown]
  - Madarosis [Not Recovered/Not Resolved]
  - Hair texture abnormal [Unknown]
